FAERS Safety Report 5973409-2 (Version None)
Quarter: 2008Q4

REPORT INFORMATION
  Report Type: 
  Country: None (occurrence: None)
  Receive Date: 20081201
  Receipt Date: 20081121
  Transmission Date: 20090506
  Serious: Yes (Death)
  Sender: FDA-Public Use
  Company Number: US-AMGEN-QUU320301

PATIENT
  Sex: Female

DRUGS (2)
  1. ENBREL [Suspect]
     Indication: RHEUMATOID ARTHRITIS
     Dates: start: 20001201
  2. METHOTREXATE [Concomitant]

REACTIONS (3)
  - BRAIN NEOPLASM [None]
  - LUNG NEOPLASM [None]
  - RHEUMATOID ARTHRITIS [None]
